FAERS Safety Report 8254871-1 (Version None)
Quarter: 2012Q1

REPORT INFORMATION
  Report Type: 
  Country: None (occurrence: None)
  Receive Date: 20120329
  Receipt Date: 20120319
  Transmission Date: 20120608
  Serious: Yes (Other)
  Sender: FDA-Public Use
  Company Number: 2012P1010197

PATIENT
  Age: 34 Year
  Sex: Male

DRUGS (1)
  1. CARISPRODOL (NO PREF. NAME) [Suspect]
     Dosage: IV
     Route: 042

REACTIONS (6)
  - PULMONARY HYPERTENSION [None]
  - CARDIAC MURMUR [None]
  - PULMONARY EMBOLISM [None]
  - WRONG TECHNIQUE IN DRUG USAGE PROCESS [None]
  - TRICUSPID VALVE INCOMPETENCE [None]
  - INCORRECT ROUTE OF DRUG ADMINISTRATION [None]
